FAERS Safety Report 6925359-2 (Version None)
Quarter: 2010Q3

REPORT INFORMATION
  Report Type: 
  Country: None (occurrence: None)
  Receive Date: 20100813
  Receipt Date: 20100813
  Transmission Date: 20110219
  Serious: Yes (Other)
  Sender: FDA-Public Use
  Company Number: None

PATIENT
  Age: 66 Year
  Sex: Female
  Weight: 61.6892 kg

DRUGS (3)
  1. WELCHOL [Suspect]
     Indication: BLOOD CHOLESTEROL INCREASED
     Dosage: 3 TABLETS TWICE A DAY ORAL
     Route: 048
     Dates: start: 20100310, end: 20100709
  2. LYRICA [Concomitant]
  3. JANUVIA [Concomitant]

REACTIONS (2)
  - AMNESIA [None]
  - MUSCULAR WEAKNESS [None]
